FAERS Safety Report 8242901-2 (Version None)
Quarter: 2012Q1

REPORT INFORMATION
  Report Type: 
  Country: None (occurrence: None)
  Receive Date: 20120329
  Receipt Date: 20120320
  Transmission Date: 20120608
  Serious: Yes (Other)
  Sender: FDA-Public Use
  Company Number: CZ-JNJFOC-20120311053

PATIENT
  Age: 7 Year
  Sex: Female

DRUGS (7)
  1. METHYLPHENIDATE HCL [Suspect]
     Indication: ATTENTION DEFICIT/HYPERACTIVITY DISORDER
     Route: 048
  2. METHYLPHENIDATE HCL [Suspect]
     Route: 048
  3. METHYLPHENIDATE HCL [Suspect]
     Route: 048
  4. METHYLPHENIDATE HCL [Suspect]
     Dosage: 1 DOSE IN THE MORNING AND ONE IN EARLY AFTERNOON
     Route: 048
  5. METHYLPHENIDATE HCL [Suspect]
     Dosage: GIVEN UPTO 10 MG IN THE MORNING AND 5 MG 3 HOURS LATER
     Route: 048
  6. METHYLPHENIDATE HCL [Suspect]
     Dosage: IN MORNING, FOR THE 1ST MONTH
     Route: 048
  7. METHYLPHENIDATE HCL [Suspect]
     Route: 048

REACTIONS (3)
  - STATUS EPILEPTICUS [None]
  - INSOMNIA [None]
  - FATIGUE [None]
